FAERS Safety Report 6685885-0 (Version None)
Quarter: 2010Q2

REPORT INFORMATION
  Report Type: 
  Country: None (occurrence: None)
  Receive Date: 20100419
  Receipt Date: 20100408
  Transmission Date: 20101027
  Serious: Yes (Hospitalization)
  Sender: FDA-Public Use
  Company Number: JP-JNJFOC-20090706056

PATIENT
  Age: 31 Year
  Sex: Female
  Weight: 42 kg

DRUGS (11)
  1. REMICADE [Suspect]
     Indication: CROHN'S DISEASE
     Route: 042
  2. REMICADE [Suspect]
     Dosage: INFUSION 2-3 ON UNSPECIFIED DATES IN 2009
     Route: 042
  3. REMICADE [Suspect]
     Route: 042
  4. PREDNISOLONE [Concomitant]
     Indication: CROHN'S DISEASE
     Route: 048
  5. PREDNISOLONE [Concomitant]
     Route: 048
  6. PREDNISOLONE [Concomitant]
     Route: 048
  7. PREDNISOLONE [Concomitant]
     Route: 048
  8. PENTASA [Concomitant]
     Indication: CROHN'S DISEASE
     Route: 048
  9. PENTASA [Concomitant]
     Route: 048
  10. BIO THREE [Concomitant]
     Indication: CROHN'S DISEASE
     Dosage: 4 TABLETS DAILY
     Route: 048
  11. BIO THREE [Concomitant]
     Dosage: 3 TABLETS DAILY
     Route: 048

REACTIONS (1)
  - DISSEMINATED TUBERCULOSIS [None]
